FAERS Safety Report 15432646 (Version 1)
Quarter: 2018Q3

REPORT INFORMATION
  Report Type: Report from Study
  Country: US (occurrence: US)
  Receive Date: 20180927
  Receipt Date: 20180927
  Transmission Date: 20181010
  Serious: No
  Sender: FDA-Public Use
  Company Number: PHHY2018US109055

PATIENT
  Sex: Male
  Weight: 81.63 kg

DRUGS (1)
  1. COSENTYX [Suspect]
     Active Substance: SECUKINUMAB
     Indication: PSORIASIS
     Route: 058
     Dates: start: 201704

REACTIONS (4)
  - Panic attack [Unknown]
  - Cardiac disorder [Unknown]
  - Migraine [Unknown]
  - Chest pain [Unknown]
